FAERS Safety Report 5053364-2 (Version None)
Quarter: 2006Q3

REPORT INFORMATION
  Report Type: 
  Country: None (occurrence: None)
  Receive Date: 20060712
  Receipt Date: 20060626
  Transmission Date: 20061208
  Serious: Yes (Hospitalization)
  Sender: FDA-Public Use
  Company Number: DE200607000173

PATIENT
  Sex: Female
  Weight: 60 kg

DRUGS (5)
  1. GEMCITABINE HYDROCHLORIDE (GEMCITABINE HYDROCHLORIDE) [Suspect]
     Indication: BREAST CANCER
     Dosage: 1500 MG, INTRAVENOUS
     Route: 042
     Dates: start: 20060605, end: 20060605
  2. ^*DOCETAXEL (*DOCETAXEL) [Suspect]
     Indication: BREAST CANCER
     Dosage: 125 MG, INTRAVENOUS
     Route: 042
     Dates: start: 20060605, end: 20060605
  3. DEXAMETHASONE TAB [Concomitant]
  4. TAVEGIL (CLEMASTINE) [Concomitant]
  5. CIMETIDINE [Concomitant]

REACTIONS (1)
  - ENTEROCOLITIS HAEMORRHAGIC [None]
